FAERS Safety Report 25129648 (Version 2)
Quarter: 2025Q2

REPORT INFORMATION
  Report Type: Spontaneous
  Country: IN (occurrence: IN)
  Receive Date: 20250327
  Receipt Date: 20250429
  Transmission Date: 20250717
  Serious: Yes (Other)
  Sender: PFIZER
  Company Number: IN-PFIZER INC-PV202500036275

PATIENT
  Age: 82 Year
  Sex: Female

DRUGS (9)
  1. PALBOCICLIB [Suspect]
     Active Substance: PALBOCICLIB
     Dosage: 125 MG, 1X/DAY
     Route: 048
     Dates: start: 20241117, end: 20241207
  2. DOXYCYCLINE HYDROCHLORIDE [Concomitant]
     Active Substance: DOXYCYCLINE HYDROCHLORIDE
  3. PYRIDOXINE HYDROCHLORIDE [Concomitant]
     Active Substance: PYRIDOXINE HYDROCHLORIDE
     Dosage: 1-0-0, DAILY, 30 DAYS
  4. DMAXCAL [Concomitant]
     Dosage: 0-1-0, DAILY, 3 MONTHS
  5. LETROZOLE [Concomitant]
     Active Substance: LETROZOLE
     Dosage: 0-1-0, DAILY, 6 MONTHS
  6. CLONAZEPAM [Concomitant]
     Active Substance: CLONAZEPAM
     Dosage: 0-0-1, DAILY, 30 DAYS
  7. PAN [Concomitant]
  8. ISONIAZID\RIFAMPIN [Concomitant]
     Active Substance: ISONIAZID\RIFAMPIN
     Dosage: 1-0-0, DAILY, 3 MONTHS
  9. TOSSEX [Concomitant]
     Dosage: 1-0-1, DAILY, 1 MONTH

REACTIONS (2)
  - Ascites [Unknown]
  - Pruritus [Unknown]
